FAERS Safety Report 9710092 (Version 5)
Quarter: 2014Q1

REPORT INFORMATION
  Report Type: Spontaneous
  Country: US (occurrence: US)
  Receive Date: 20131126
  Receipt Date: 20140120
  Transmission Date: 20141002
  Serious: Yes (Other)
  Sender: FDA-Public Use
  Company Number: US-009507513-1311USA008950

PATIENT
  Age: 17 Year
  Sex: Female
  Weight: 68.27 kg

DRUGS (1)
  1. IMPLANON [Suspect]
     Indication: CONTRACEPTION
     Dosage: EVERY 3 YEARS, 1 ROD
     Route: 059
     Dates: start: 20120806

REACTIONS (8)
  - Surgery [Unknown]
  - Scar [Unknown]
  - Device dislocation [Unknown]
  - Device difficult to use [Unknown]
  - Device deployment issue [Unknown]
  - Hypoaesthesia [Unknown]
  - Medical device complication [Unknown]
  - Pain [Unknown]
